FAERS Safety Report 11846528 (Version 1)
Quarter: 2015Q4

REPORT INFORMATION
  Report Type: Other
  Country: GB (occurrence: GB)
  Receive Date: 20151217
  Receipt Date: 20151217
  Transmission Date: 20160305
  Serious: Yes (Life-Threatening, Hospitalization, Other)
  Sender: FDA-Public Use
  Company Number: GB-PERRIGO-15GB012947

PATIENT

DRUGS (1)
  1. IBUPROFEN 16028/0027 200 MG [Suspect]
     Active Substance: IBUPROFEN
     Indication: PAIN
     Dosage: 400 MG TID PRN
     Route: 048
     Dates: start: 20151113, end: 20151116

REACTIONS (3)
  - Gastric ulcer perforation [Recovered/Resolved with Sequelae]
  - Upper gastrointestinal haemorrhage [Unknown]
  - Abdominal pain [Unknown]

NARRATIVE: CASE EVENT DATE: 20151121
